FAERS Safety Report 23855777 (Version 1)
Quarter: 2024Q2

REPORT INFORMATION
  Report Type: Spontaneous
  Country: US (occurrence: US)
  Receive Date: 20240514
  Receipt Date: 20240514
  Transmission Date: 20240716
  Serious: No
  Sender: FDA-Public Use
  Company Number: US-Harrow Eye-2156969

PATIENT
  Age: 16 Year
  Sex: Male

DRUGS (1)
  1. VERKAZIA [Suspect]
     Active Substance: CYCLOSPORINE
     Indication: Conjunctivitis allergic

REACTIONS (2)
  - Ocular hyperaemia [Unknown]
  - Product use issue [Unknown]
